FAERS Safety Report 20520173 (Version 10)
Quarter: 2023Q1

REPORT INFORMATION
  Report Type: Spontaneous
  Country: AT (occurrence: AT)
  Receive Date: 20220225
  Receipt Date: 20230102
  Transmission Date: 20230417
  Serious: Yes (Hospitalization, Other)
  Sender: FDA-Public Use
  Company Number: AT-ROCHE-3017431

PATIENT
  Age: 48 Year
  Sex: Female
  Weight: 58 kg

DRUGS (52)
  1. CAPECITABINE [Suspect]
     Active Substance: CAPECITABINE
     Indication: HER2 positive breast cancer
     Dosage: 500 MG (MOST RECENT DOSE PRIOR TO THE EVENT: 09/JAN/2021)
     Route: 048
     Dates: start: 20200923, end: 20201220
  2. CAPECITABINE [Suspect]
     Active Substance: CAPECITABINE
     Dosage: 500 MG (MOST RECENT DOSE PRIOR TO AE 09/DEC/2021)
     Route: 048
     Dates: start: 20210109, end: 20211209
  3. LAPATINIB [Suspect]
     Active Substance: LAPATINIB
     Indication: HER2 positive breast cancer
     Dosage: 250 MG (MOST RECENT DOSE PRIOR TO THE EVENT: 09/JAN/2021)
     Route: 048
     Dates: start: 20200923, end: 20201228
  4. LAPATINIB [Suspect]
     Active Substance: LAPATINIB
     Dosage: 250 MG, QD (MOST RECENT DOSE PRIOR TO AE 16/DEC/2021)
     Route: 048
     Dates: start: 20210109, end: 20211216
  5. PACLITAXEL [Suspect]
     Active Substance: PACLITAXEL
     Indication: HER2 positive breast cancer
     Dosage: 260 MG/M2, Q3W (1 TIMES IN 3 WEEK) (MOST RECENT DOSE PRIOR TO AE 12 SEP 2019)
     Route: 042
     Dates: start: 20190724, end: 20190912
  6. TRASTUZUMAB [Suspect]
     Active Substance: TRASTUZUMAB
     Indication: HER2 positive breast cancer
     Dosage: MOST RECENT DOSE PRIOR TO AE 12/SEP/2019
     Route: 042
     Dates: start: 20190724, end: 20190912
  7. ADO-TRASTUZUMAB EMTANSINE [Suspect]
     Active Substance: ADO-TRASTUZUMAB EMTANSINE
     Indication: HER2 positive breast cancer
     Dosage: 1 TIMES IN 3 WEEK
     Route: 042
     Dates: start: 20191014, end: 20200518
  8. ADO-TRASTUZUMAB EMTANSINE [Suspect]
     Active Substance: ADO-TRASTUZUMAB EMTANSINE
     Dosage: MOST RECENT DOSE PRIOR TO AE 03/JUL/2020
     Route: 042
     Dates: start: 20200703, end: 20200703
  9. PERTUZUMAB [Suspect]
     Active Substance: PERTUZUMAB
     Indication: HER2 positive breast cancer
     Dosage: MOST RECENT DOSE PRIOR TO AE 12/SEP/2019
     Route: 042
     Dates: start: 20190724, end: 20190912
  10. HYDROMORPHONE HYDROCHLORIDE [Concomitant]
     Active Substance: HYDROMORPHONE HYDROCHLORIDE
     Indication: Product used for unknown indication
     Dosage: 1.3 MG, PRN
     Route: 048
     Dates: start: 20190716
  11. HYDROMORPHONE HYDROCHLORIDE [Concomitant]
     Active Substance: HYDROMORPHONE HYDROCHLORIDE
     Dosage: 2 MG, BID (2 TIMES IN 1 DAY)
     Route: 048
     Dates: start: 20190716, end: 20200927
  12. HYDROMORPHONE HYDROCHLORIDE [Concomitant]
     Active Substance: HYDROMORPHONE HYDROCHLORIDE
     Dosage: 2 MG, BID (2 TIMES IN 1 DAY)
     Route: 048
     Dates: start: 20220207
  13. CITALOPRAM [Concomitant]
     Active Substance: CITALOPRAM HYDROBROMIDE
     Indication: Product used for unknown indication
     Dosage: ONGOING = CHECKED
     Route: 048
     Dates: start: 20190715
  14. ALPRAZOLAM [Concomitant]
     Active Substance: ALPRAZOLAM
     Indication: Product used for unknown indication
     Dosage: PRN
     Route: 048
     Dates: start: 20190715
  15. DEXAMETHASONE [Concomitant]
     Active Substance: DEXAMETHASONE
     Indication: COVID-19
     Dosage: 8 MG
     Route: 042
     Dates: start: 20190704, end: 20190912
  16. DEXAMETHASONE [Concomitant]
     Active Substance: DEXAMETHASONE
     Dosage: 8 MG
     Route: 048
     Dates: start: 20190705, end: 20190914
  17. DEXAMETHASONE [Concomitant]
     Active Substance: DEXAMETHASONE
     Dosage: 6 MG, QD
     Route: 048
     Dates: start: 20210302, end: 20210304
  18. DEXAMETHASONE [Concomitant]
     Active Substance: DEXAMETHASONE
     Dosage: 8 MG, Q3W
     Route: 042
     Dates: start: 20220110
  19. DEXAMETHASONE [Concomitant]
     Active Substance: DEXAMETHASONE
     Dosage: UNK
     Route: 065
     Dates: start: 20220111, end: 20220112
  20. DEXAMETHASONE [Concomitant]
     Active Substance: DEXAMETHASONE
     Dosage: UNK
     Route: 065
     Dates: start: 20220113, end: 20220114
  21. DEXAMETHASONE [Concomitant]
     Active Substance: DEXAMETHASONE
     Dosage: UNK
     Route: 065
     Dates: start: 20220115, end: 20220323
  22. PANTOPRAZOLE SODIUM [Concomitant]
     Active Substance: PANTOPRAZOLE SODIUM
     Indication: COVID-19
     Dosage: ONGOING = CHECKED
     Route: 048
     Dates: start: 20190701
  23. PANTOPRAZOLE SODIUM [Concomitant]
     Active Substance: PANTOPRAZOLE SODIUM
     Indication: COVID-19
     Dosage: ONGOING = CHECKED
     Route: 048
     Dates: start: 20210222, end: 20210302
  24. POLYETHYLENE GLYCOL 4000 [Concomitant]
     Active Substance: POLYETHYLENE GLYCOL 4000
     Indication: Product used for unknown indication
     Dosage: 10 MG, (3 DAY) (ONGOING = CHECKED)
     Route: 048
     Dates: start: 20190705
  25. ACETAMINOPHEN [Concomitant]
     Active Substance: ACETAMINOPHEN
     Indication: Product used for unknown indication
     Dosage: PRN
     Route: 048
     Dates: start: 20190701
  26. SUCRALAN [Concomitant]
     Indication: Product used for unknown indication
     Dosage: PRN
     Route: 048
     Dates: start: 20190701
  27. DRONABINOL [Concomitant]
     Active Substance: DRONABINOL
     Indication: Product used for unknown indication
     Dosage: 2 DROP-2 DROP-2 DROP
     Route: 048
     Dates: start: 20190716, end: 20210804
  28. DRONABINOL [Concomitant]
     Active Substance: DRONABINOL
     Dosage: ONGOING = CHECKED
     Route: 048
     Dates: start: 20210705
  29. CEOLAT [Concomitant]
     Indication: Product used for unknown indication
     Dosage: OTHER UP TO 3 X DAILY 10 ML
     Route: 048
     Dates: start: 20190815
  30. ZOFRAN [Concomitant]
     Active Substance: ONDANSETRON HYDROCHLORIDE
     Indication: COVID-19
     Dosage: 8 MG, PRN
     Route: 048
     Dates: start: 20190701
  31. ZOFRAN [Concomitant]
     Active Substance: ONDANSETRON HYDROCHLORIDE
     Dosage: 8 MG, PRN
     Route: 042
     Dates: start: 20190704, end: 20200703
  32. ZOFRAN [Concomitant]
     Active Substance: ONDANSETRON HYDROCHLORIDE
     Dosage: 8 MG, BID (2 TIMES IN 1 DAY)
     Route: 067
     Dates: start: 20190705, end: 20190914
  33. ZOFRAN [Concomitant]
     Active Substance: ONDANSETRON HYDROCHLORIDE
     Dosage: 4 MG, QD
     Route: 048
     Dates: start: 20210302, end: 20210302
  34. ZOFRAN [Concomitant]
     Active Substance: ONDANSETRON HYDROCHLORIDE
     Dosage: 8 MG, (1 TIMES IN 3 WEEK )
     Route: 042
     Dates: start: 20220110
  35. ASCORBIC ACID\CALCIUM PHOSPHATE\CHOLECALCIFEROL\CITRIC ACID MONOHYDRAT [Concomitant]
     Active Substance: ASCORBIC ACID\CALCIUM PHOSPHATE\CHOLECALCIFEROL\CITRIC ACID MONOHYDRATE
     Indication: Product used for unknown indication
     Dosage: 500 MG (ONGOING = CHECKED)
     Route: 048
     Dates: start: 20190717
  36. LOPERAMIDE HYDROCHLORIDE [Concomitant]
     Active Substance: LOPERAMIDE HYDROCHLORIDE
     Indication: Diarrhoea
     Dosage: PRN
     Route: 048
     Dates: start: 20210215
  37. LOVENOX [Concomitant]
     Active Substance: ENOXAPARIN SODIUM
     Indication: COVID-19
     Dosage: 40 MG, QD
     Route: 030
     Dates: start: 20210302, end: 20210305
  38. LOVENOX [Concomitant]
     Active Substance: ENOXAPARIN SODIUM
     Indication: COVID-19
  39. ACETAMINOPHEN [Concomitant]
     Active Substance: ACETAMINOPHEN
     Indication: COVID-19
     Dosage: PRN (AS NEEDED)
     Route: 048
     Dates: start: 20210302, end: 20210303
  40. ACETAMINOPHEN [Concomitant]
     Active Substance: ACETAMINOPHEN
     Indication: COVID-19
  41. VALACYCLOVIR HYDROCHLORIDE [Concomitant]
     Active Substance: VALACYCLOVIR HYDROCHLORIDE
     Indication: Product used for unknown indication
     Dosage: 500 MG, QD
     Route: 048
     Dates: start: 20190716, end: 20191011
  42. OLANZAPINE [Concomitant]
     Active Substance: OLANZAPINE
     Indication: Product used for unknown indication
     Dosage: OTHER 0-0-1/2
     Route: 048
     Dates: start: 20190821, end: 20190904
  43. OLANZAPINE [Concomitant]
     Active Substance: OLANZAPINE
     Dosage: OTHER 0-0-1/2
     Route: 048
     Dates: start: 20190904, end: 20200926
  44. TRAZODONE HYDROCHLORIDE [Concomitant]
     Active Substance: TRAZODONE HYDROCHLORIDE
     Indication: Product used for unknown indication
     Dosage: 150 MG, QD
     Route: 048
     Dates: start: 20190716, end: 20200926
  45. EUTHYROX [Concomitant]
     Active Substance: LEVOTHYROXINE SODIUM
     Indication: Product used for unknown indication
     Dosage: 75 UG, QD
     Route: 048
     Dates: end: 201906
  46. EUTHYROX [Concomitant]
     Active Substance: LEVOTHYROXINE SODIUM
     Dosage: 50 UG, QD
     Route: 048
     Dates: start: 20190703, end: 20200929
  47. EUTHYROX [Concomitant]
     Active Substance: LEVOTHYROXINE SODIUM
     Dosage: 25 UG, QD
     Route: 048
     Dates: start: 20200930, end: 20210108
  48. NEURONTIN [Concomitant]
     Active Substance: GABAPENTIN
     Indication: Product used for unknown indication
     Dosage: 300 MG, BID (2 TIMES IN 1 DAY)
     Route: 048
     Dates: start: 201908, end: 201908
  49. NEURONTIN [Concomitant]
     Active Substance: GABAPENTIN
     Dosage: 2 TIMES IN 1 DAY
     Route: 048
     Dates: start: 201908, end: 201908
  50. AMOXICILLIN AND CLAVULANATE POTASSIUM [Concomitant]
     Active Substance: AMOXICILLIN\CLAVULANATE POTASSIUM
     Indication: Influenza
     Dosage: 875 MG, BID (2 TIMES IN 1 DAY
     Route: 048
     Dates: start: 20200527, end: 20200602
  51. NEULASTA [Concomitant]
     Active Substance: PEGFILGRASTIM
     Indication: Product used for unknown indication
     Dosage: UNK
     Route: 065
     Dates: start: 20220420
  52. EMEND [Concomitant]
     Active Substance: APREPITANT
     Indication: Product used for unknown indication
     Dosage: UNK
     Route: 065
     Dates: start: 20220621

REACTIONS (7)
  - Vascular device infection [Recovered/Resolved]
  - Pyrexia [Recovered/Resolved]
  - Intracranial pressure increased [Recovered/Resolved]
  - Iron deficiency anaemia [Recovered/Resolved]
  - Insomnia [Not Recovered/Not Resolved]
  - Gamma-glutamyltransferase increased [Not Recovered/Not Resolved]
  - Gamma-glutamyltransferase increased [Recovered/Resolved]

NARRATIVE: CASE EVENT DATE: 20211227
